FAERS Safety Report 17398737 (Version 1)
Quarter: 2020Q1

REPORT INFORMATION
  Report Type: Spontaneous
  Country: US (occurrence: US)
  Receive Date: 20200210
  Receipt Date: 20200210
  Transmission Date: 20200409
  Serious: No
  Sender: FDA-Public Use
  Company Number: US-VAYAPHARMA-2019-US-001915

PATIENT
  Age: 15 Year
  Sex: Male

DRUGS (1)
  1. VAYARIN PLUS [Suspect]
     Active Substance: DOCONEXENT\ICOSAPENT\PHOSPHATIDYL SERINE
     Indication: ATTENTION DEFICIT/HYPERACTIVITY DISORDER
     Dosage: ONE TAB DAILY
     Route: 048
     Dates: start: 20190118, end: 20190118

REACTIONS (4)
  - Anxiety [Recovered/Resolved]
  - Acne [Recovered/Resolved]
  - Mood altered [Recovered/Resolved]
  - Seborrhoea [Recovered/Resolved]

NARRATIVE: CASE EVENT DATE: 20190118
